FAERS Safety Report 15280518 (Version 1)
Quarter: 2018Q3

REPORT INFORMATION
  Report Type: Spontaneous
  Country: US (occurrence: US)
  Receive Date: 20180730
  Receipt Date: 20180730
  Transmission Date: 20181010
  Serious: No
  Sender: FDA-Public Use
  Company Number: None

PATIENT
  Sex: Female

DRUGS (2)
  1. CIMZIA [Suspect]
     Active Substance: CERTOLIZUMAB PEGOL
     Route: 042
     Dates: start: 201312
  2. BENLYSTA [Suspect]
     Active Substance: BELIMUMAB
     Route: 042
     Dates: start: 201312

REACTIONS (1)
  - Urinary tract infection [None]
